FAERS Safety Report 25675433 (Version 1)
Quarter: 2025Q3

REPORT INFORMATION
  Report Type: Spontaneous
  Country: US (occurrence: None)
  Receive Date: 20250812
  Receipt Date: 20250812
  Transmission Date: 20251020
  Serious: Yes (Death)
  Sender: FDA-CTU
  Company Number: None

PATIENT
  Age: 40 Year
  Sex: Female

DRUGS (1)
  1. OFEV [Suspect]
     Active Substance: NINTEDANIB
     Indication: Systemic sclerosis pulmonary
     Dosage: FREQUENCY : TWICE A DAY;?
     Route: 048
     Dates: start: 20250409, end: 20250812

REACTIONS (1)
  - Death [None]

NARRATIVE: CASE EVENT DATE: 20250812
